FAERS Safety Report 8774527 (Version 1)
Quarter: 2012Q4

REPORT INFORMATION
  Report Type: 
  Country: US (occurrence: US)
  Receive Date: 20120907
  Receipt Date: 20120907
  Transmission Date: 20130627
  Serious: Yes (Hospitalization, Other)
  Sender: FDA-Public Use
  Company Number: US-B.I. PHARMACEUTICALS,INC./RIDGEFIELD-2012-BP-21300BP

PATIENT
  Age: 70 Year
  Sex: Female
  Weight: 69.8 kg

DRUGS (13)
  1. CATAPRES [Suspect]
     Indication: HYPERTENSION
     Dosage: 0.1 mg
     Route: 048
     Dates: start: 20100301, end: 20120113
  2. CATAPRES [Suspect]
     Dosage: 0.1 mg
     Route: 048
     Dates: start: 20120115
  3. CELECOXIB [Suspect]
     Indication: OSTEOARTHRITIS
     Route: 048
     Dates: start: 20080623, end: 20120115
  4. CELECOXIB [Suspect]
     Indication: RHEUMATOID ARTHRITIS
  5. NEXIUM [Concomitant]
     Indication: PROPHYLAXIS
     Dates: start: 20080623, end: 20120115
  6. COREG [Concomitant]
     Indication: HYPERTENSION
     Dates: start: 20100302
  7. ALISKIREN [Concomitant]
  8. VALTURNA [Concomitant]
     Indication: HYPERTENSION
     Dates: start: 20110621
  9. CELEXA [Concomitant]
     Indication: MAJOR DEPRESSION
     Dates: start: 20031016
  10. PRAVASTATIN [Concomitant]
     Indication: BLOOD CHOLESTEROL
     Dates: start: 20110524
  11. LEVOTHYROXINE [Concomitant]
     Indication: HYPOTHYROIDISM
     Dates: start: 20110309
  12. WELLBUTRIN XL [Concomitant]
     Dates: start: 20110506
  13. LIPITOR [Concomitant]
     Indication: HYPERLIPIDAEMIA
     Dates: start: 20110524

REACTIONS (3)
  - Hypertensive emergency [Recovered/Resolved]
  - Cardiac failure congestive [Recovered/Resolved]
  - Renal failure acute [Recovered/Resolved]
